FAERS Safety Report 9856341 (Version 2)
Quarter: 2014Q1

REPORT INFORMATION
  Report Type: Report from Study
  Country: CN (occurrence: CN)
  Receive Date: 20140130
  Receipt Date: 20140130
  Transmission Date: 20141002
  Serious: Yes (Hospitalization)
  Sender: FDA-Public Use
  Company Number: PHHO2012CN010770

PATIENT
  Age: 78 Year
  Sex: Female
  Weight: 60.1 kg

DRUGS (6)
  1. EXELON [Suspect]
     Indication: DEMENTIA ALZHEIMER^S TYPE
     Dosage: UNK
     Dates: start: 20120407, end: 20120507
  2. EXELON [Suspect]
     Dosage: UNK
     Dates: start: 20120508, end: 20120607
  3. EXELON [Suspect]
     Dosage: UNK
     Dates: start: 20120608, end: 20120706
  4. EXELON [Suspect]
     Dosage: UNK
     Dates: start: 20120707, end: 20120719
  5. EXELON [Suspect]
     Dosage: UNK
     Dates: start: 20120806
  6. OMEPRAZOLE [Concomitant]
     Indication: GASTROOESOPHAGEAL REFLUX DISEASE
     Dosage: 20 MG, QD
     Route: 048

REACTIONS (1)
  - Coronary artery disease [Recovering/Resolving]
